FAERS Safety Report 4293202-9 (Version None)
Quarter: 2004Q1

REPORT INFORMATION
  Report Type: 
  Country: None (occurrence: None)
  Receive Date: 20040210
  Receipt Date: 20040210
  Transmission Date: 20041129
  Serious: Yes (Hospitalization)
  Sender: FDA-Public Use
  Company Number: MK200402-0062-1

PATIENT
  Age: 40 Year
  Sex: Male

DRUGS (1)
  1. RESTORIL 7.5 MG [Suspect]
     Dosage: 15 MG PO QD
     Route: 048

REACTIONS (4)
  - CONVULSION [None]
  - DEVICE FAILURE [None]
  - MEDICATION ERROR [None]
  - PHARMACEUTICAL PRODUCT COMPLAINT [None]
